FAERS Safety Report 7105183-0 (Version None)
Quarter: 2010Q4

REPORT INFORMATION
  Report Type: 
  Country: None (occurrence: None)
  Receive Date: 20101109
  Receipt Date: 20101026
  Transmission Date: 20110411
  Serious: Yes (Hospitalization)
  Sender: FDA-Public Use
  Company Number: 2010BI037712

PATIENT
  Age: 73 Year
  Sex: Male

DRUGS (1)
  1. ZEVALIN [Suspect]
     Indication: NON-HODGKIN'S LYMPHOMA
     Dosage: ; IV
     Route: 042
     Dates: start: 20090801, end: 20090801

REACTIONS (1)
  - ILEUS [None]
